FAERS Safety Report 8304430-7 (Version None)
Quarter: 2012Q2

REPORT INFORMATION
  Report Type: 
  Country: None (occurrence: None)
  Receive Date: 20120423
  Receipt Date: 20120130
  Transmission Date: 20120825
  Serious: No
  Sender: FDA-Public Use
  Company Number: US-COVIDIEN/TYCO HEALTHCARE/MALLINCKRODT-T201200556

PATIENT

DRUGS (1)
  1. METHYLIN [Suspect]
     Route: 045

REACTIONS (1)
  - INCORRECT ROUTE OF DRUG ADMINISTRATION [None]
